FAERS Safety Report 6093270-8 (Version None)
Quarter: 2009Q1

REPORT INFORMATION
  Report Type: 
  Country: None (occurrence: None)
  Receive Date: 20090225
  Receipt Date: 20090225
  Transmission Date: 20090719
  Serious: Yes (Life-Threatening)
  Sender: FDA-Public Use
  Company Number: None

PATIENT
  Sex: Female
  Weight: 54.8852 kg

DRUGS (2)
  1. METOPROLOL SUCCINATE [Suspect]
     Indication: ARRHYTHMIA
     Dosage: 100 MG. 1 X DAY MOUTH EST. WHILE IN SAN DIEGO
     Route: 048
     Dates: start: 20080701, end: 20081201
  2. METOPROLOL SUCCINATE [Suspect]
     Indication: BLOOD PRESSURE INCREASED
     Dosage: 100 MG. 1 X DAY MOUTH EST. WHILE IN SAN DIEGO
     Route: 048
     Dates: start: 20080701, end: 20081201

REACTIONS (14)
  - ARRHYTHMIA [None]
  - BLOOD PRESSURE DECREASED [None]
  - BLOOD PRESSURE INCREASED [None]
  - CHEST PAIN [None]
  - CHILLS [None]
  - DISTURBANCE IN ATTENTION [None]
  - DYSPNOEA [None]
  - ERYTHEMA [None]
  - HEART RATE INCREASED [None]
  - HYPERHIDROSIS [None]
  - OEDEMA PERIPHERAL [None]
  - PULSE PRESSURE DECREASED [None]
  - SOMNOLENCE [None]
  - VISION BLURRED [None]
